FAERS Safety Report 6491013-7 (Version None)
Quarter: 2009Q4

REPORT INFORMATION
  Report Type: 
  Country: None (occurrence: None)
  Receive Date: 20091211
  Receipt Date: 20091127
  Transmission Date: 20100525
  Serious: Yes (Death)
  Sender: FDA-Public Use
  Company Number: MA-ROCHE-673611

PATIENT
  Age: 39 Year
  Sex: Female
  Weight: 66 kg

DRUGS (3)
  1. BEVACIZUMAB [Suspect]
     Indication: DRUG USE FOR UNKNOWN INDICATION
     Dosage: FREQUENCY REPORTED AS 2 WEEKS.
     Route: 042
     Dates: start: 20090327, end: 20091009
  2. TAXOL [Suspect]
     Indication: DRUG USE FOR UNKNOWN INDICATION
     Dosage: FRQUENCY: WEEKLY.
     Route: 042
     Dates: start: 20090327, end: 20091016
  3. BONDRONAT [Concomitant]
     Dosage: FREQUENCY: 3 WEEKS.
     Route: 042
     Dates: start: 20090327, end: 20091009

REACTIONS (1)
  - APLASTIC ANAEMIA [None]
